FAERS Safety Report 16060063 (Version 1)
Quarter: 2019Q2

REPORT INFORMATION
  Report Type: Spontaneous
  Country: US (occurrence: US)
  Receive Date: 20190312
  Receipt Date: 20190312
  Transmission Date: 20190711
  Serious: Yes (Death)
  Sender: FDA-Public Use
  Company Number: None

PATIENT
  Age: 66 Year
  Sex: Female
  Weight: 51.75 kg

DRUGS (1)
  1. LEFLUNOMIDE. [Suspect]
     Active Substance: LEFLUNOMIDE
     Indication: RHEUMATOID ARTHRITIS
     Dates: start: 20170716, end: 20181007

REACTIONS (7)
  - Hepatic failure [None]
  - Constipation [None]
  - Fatigue [None]
  - Weight decreased [None]
  - Renal failure [None]
  - Sepsis [None]
  - Diarrhoea [None]

NARRATIVE: CASE EVENT DATE: 20181130
